FAERS Safety Report 25192290 (Version 1)
Quarter: 2025Q2

REPORT INFORMATION
  Report Type: Spontaneous
  Country: US (occurrence: None)
  Receive Date: 20250411
  Receipt Date: 20250411
  Transmission Date: 20250717
  Serious: Yes (Hospitalization)
  Sender: FDA-CTU
  Company Number: None

PATIENT
  Sex: Female

DRUGS (2)
  1. MYCOPHENOLATE MOFETIL [Suspect]
     Active Substance: MYCOPHENOLATE MOFETIL
     Indication: Pulmonary arterial hypertension
     Dosage: 1000 MG TWICE A DAY ORAL ?
     Route: 048
     Dates: start: 20240518
  2. TYVASO DPI [Suspect]
     Active Substance: TREPROSTINIL

REACTIONS (1)
  - Pulmonary hypertension [None]
